FAERS Safety Report 19430014 (Version 1)
Quarter: 2021Q2

REPORT INFORMATION
  Report Type: Spontaneous
  Country: NL (occurrence: IE)
  Receive Date: 20210617
  Receipt Date: 20210617
  Transmission Date: 20210717
  Serious: Yes (Other)
  Sender: FDA-Public Use
  Company Number: IE-FRESENIUS KABI-FK202105991

PATIENT
  Age: 82 Year
  Sex: Male
  Weight: 70 kg

DRUGS (2)
  1. PACLITAXEL (MANUFACTURER UNKNOWN) [Suspect]
     Active Substance: PACLITAXEL
     Indication: OESOPHAGEAL CARCINOMA
     Dosage: UNK
     Route: 065
     Dates: start: 202011, end: 202012
  2. CARBOPLATIN (MANUFACTURER UNKNOWN) [Suspect]
     Active Substance: CARBOPLATIN
     Indication: OESOPHAGEAL CARCINOMA
     Dosage: UNK
     Route: 065
     Dates: start: 202011, end: 202012

REACTIONS (1)
  - Dysphagia [Unknown]
